FAERS Safety Report 10867631 (Version 1)
Quarter: 2015Q1

REPORT INFORMATION
  Report Type: Spontaneous
  Country: IT (occurrence: IT)
  Receive Date: 20150225
  Receipt Date: 20150225
  Transmission Date: 20150721
  Serious: Yes (Hospitalization)
  Sender: FDA-Public Use
  Company Number: IT-TEVA-543180ACC

PATIENT
  Age: 35 Year
  Sex: Female

DRUGS (4)
  1. PACLITAXEL TEVA - TEVA ITALIA S.R.L. [Suspect]
     Active Substance: PACLITAXEL
     Indication: BREAST CANCER METASTATIC
     Dosage: 136 MG CYCLICAL, CONCENTRATE FOR SOLUTION FOR INFUSION
     Route: 042
     Dates: start: 20150129, end: 20150129
  2. ENDOXAN BAXTER - BAXTER S.P.A. [Concomitant]
     Active Substance: CYCLOPHOSPHAMIDE
     Indication: BREAST CANCER METASTATIC
     Dosage: 1020 MG, POWDER FOR SOLUTION FOR INJECTION
     Route: 042
     Dates: start: 20150108, end: 20150129
  3. EMEND - MERCK SHARP AND DOHME LIMITED [Concomitant]
     Indication: PROPHYLAXIS OF NAUSEA AND VOMITING
     Dosage: 120 MG, POWDER AND SOLVENT FOR SOLUTION FOR INJECTION
     Route: 042
     Dates: start: 20150108, end: 20150129
  4. ADRIBLASTINA - PFIZER ITALIA S.R.L. [Concomitant]
     Indication: BREAST CANCER METASTATIC
     Dosage: 100 MG
     Route: 042
     Dates: start: 20150108, end: 20150129

REACTIONS (2)
  - Cold sweat [Recovered/Resolved]
  - Dyspnoea [Recovered/Resolved]

NARRATIVE: CASE EVENT DATE: 20150129
